FAERS Safety Report 7676922-5 (Version None)
Quarter: 2011Q3

REPORT INFORMATION
  Report Type: 
  Country: None (occurrence: None)
  Receive Date: 20110811
  Receipt Date: 20110810
  Transmission Date: 20111222
  Serious: Yes (Life-Threatening, Hospitalization, Other)
  Sender: FDA-Public Use
  Company Number: JP-SANOFI-AVENTIS-2010SA009842

PATIENT
  Age: 73 Year
  Sex: Male

DRUGS (10)
  1. OXALIPLATIN [Suspect]
     Route: 065
     Dates: start: 20100203, end: 20100203
  2. LEUCOVORIN CALCIUM [Suspect]
     Indication: COLON CANCER RECURRENT
     Dosage: DOSE FREQUENCY: TWICE PER TWO WEEKS
     Route: 041
     Dates: start: 20080310
  3. AVASTIN [Suspect]
     Route: 065
     Dates: start: 20100203, end: 20100203
  4. LEUCOVORIN CALCIUM [Concomitant]
     Dates: end: 20100201
  5. OXALIPLATIN [Suspect]
     Indication: COLON CANCER RECURRENT
     Dosage: DOSE FREQUENCY: ONCE PER TWO WEEKS
     Route: 041
     Dates: start: 20080310
  6. FLUOROURACIL [Suspect]
     Route: 065
     Dates: start: 20100203
  7. LEUCOVORIN CALCIUM [Suspect]
     Route: 065
     Dates: start: 20100203
  8. AVASTIN [Suspect]
     Indication: COLON CANCER RECURRENT
     Dosage: DOSE FREQUENCY: ONCE PER TWO WEEKS.
     Route: 041
     Dates: start: 20090203
  9. FLUOROURACIL [Suspect]
     Indication: COLON CANCER RECURRENT
     Dosage: DOSE FREQUENCY: TWICE PER TWO WEEKS
     Route: 041
     Dates: start: 20080310
  10. LEUCOVORIN CALCIUM [Concomitant]
     Dates: start: 20090203

REACTIONS (5)
  - HAEMORRHAGE SUBCUTANEOUS [None]
  - THROMBOCYTOPENIA [None]
  - DISSEMINATED INTRAVASCULAR COAGULATION [None]
  - CHILLS [None]
  - RENAL FAILURE ACUTE [None]
